FAERS Safety Report 8862405 (Version 2)
Quarter: 2012Q4

REPORT INFORMATION
  Report Type: 
  Country: BR (occurrence: BR)
  Receive Date: 20121026
  Receipt Date: 20121226
  Transmission Date: 20130627
  Serious: Yes (Death, Other)
  Sender: FDA-Public Use
  Company Number: BR-PFIZER INC-2012125827

PATIENT
  Age: 83 Year
  Sex: Female
  Weight: 46 kg

DRUGS (4)
  1. SUTENT [Suspect]
     Indication: RENAL CELL CARCINOMA
     Dosage: 50 mg, 1x/day (cycle 4 for 2))
     Route: 048
     Dates: start: 20120523
  2. ADALAT RETARD [Concomitant]
     Dosage: 20 mg, 1x/day
  3. HIGROTON [Concomitant]
     Dosage: 12.5 mg, 1x/day
  4. ADALAT [Concomitant]

REACTIONS (16)
  - Death [Fatal]
  - Erysipelas [Not Recovered/Not Resolved]
  - Erythema [Unknown]
  - Pruritus [Recovering/Resolving]
  - Visual acuity reduced [Not Recovered/Not Resolved]
  - Diarrhoea [Unknown]
  - Decreased appetite [Unknown]
  - Ageusia [Unknown]
  - Somnolence [Not Recovered/Not Resolved]
  - Muscular weakness [Not Recovered/Not Resolved]
  - Buccal mucosal roughening [Not Recovered/Not Resolved]
  - Papule [Not Recovered/Not Resolved]
  - Constipation [Unknown]
  - Faeces hard [Unknown]
  - Asthenia [Unknown]
  - Blister [Unknown]
